FAERS Safety Report 8794222 (Version 2)
Quarter: 2013Q4

REPORT INFORMATION
  Report Type: Spontaneous
  Country: US (occurrence: US)
  Receive Date: 20120918
  Receipt Date: 20131101
  Transmission Date: 20140711
  Serious: No
  Sender: FDA-Public Use
  Company Number: US-009507513-1209USA003076

PATIENT
  Sex: Female

DRUGS (2)
  1. DULERA [Suspect]
     Dosage: 100/5MCG, ROUTE: INHALER, 1 OF STANDARD DOSE OF 13
  2. DULERA [Suspect]
     Dosage: 200 MCG, UNK

REACTIONS (1)
  - Drug ineffective [Recovering/Resolving]
